FAERS Safety Report 4519755-0 (Version None)
Quarter: 2004Q4

REPORT INFORMATION
  Report Type: 
  Country: None (occurrence: None)
  Receive Date: 20041207
  Receipt Date: 20041126
  Transmission Date: 20050328
  Serious: Yes (Other)
  Sender: FDA-Public Use
  Company Number: PHBS2004CN15900

PATIENT
  Age: 2 Year
  Sex: Female

DRUGS (2)
  1. BLOOD TRANSFUSION, AUXILIARY PRODUCTS [Concomitant]
     Dosage: EVERY 15 DAYS
  2. DESFERAL [Suspect]
     Indication: BLOOD IRON INCREASED
     Route: 062
     Dates: start: 20040301

REACTIONS (1)
  - HEPATOSPLENOMEGALY [None]
